FAERS Safety Report 5824853-5 (Version None)
Quarter: 2008Q3

REPORT INFORMATION
  Report Type: 
  Country: None (occurrence: None)
  Receive Date: 20080728
  Receipt Date: 20080718
  Transmission Date: 20090109
  Serious: Yes (Hospitalization)
  Sender: FDA-Public Use
  Company Number: BB-BOEHRINGER INGELHEIM GMBH, GERMANY-2008-CN-00347CN

PATIENT
  Sex: Male

DRUGS (1)
  1. AGGRENOX [Suspect]
     Dosage: ONCE DAILY
     Route: 048
     Dates: start: 20080624, end: 20080705

REACTIONS (1)
  - OEDEMA PERIPHERAL [None]
